FAERS Safety Report 5329496-8 (Version None)
Quarter: 2007Q1

REPORT INFORMATION
  Report Type: 
  Country: None (occurrence: None)
  Receive Date: 20070227
  Receipt Date: 20061128
  Transmission Date: 20070707
  Serious: Yes (Other)
  Sender: FDA-Public Use
  Company Number: 2006147559

PATIENT
  Age: 48 Year
  Sex: Male
  Weight: 113.3993 kg

DRUGS (3)
  1. CADUET [Suspect]
     Indication: BLOOD CHOLESTEROL INCREASED
     Dosage: 10/40MG (1 IN 1 D), ORAL
     Route: 048
     Dates: start: 20050101
  2. CADUET [Suspect]
     Indication: HYPERTENSION
     Dosage: 10/40MG (1 IN 1 D), ORAL
     Route: 048
     Dates: start: 20050101
  3. ALL OTHER THERAPEUTIC PRODUCTS (ALL OTHER THERAPEUTIC PRODUCTS) [Concomitant]

REACTIONS (1)
  - COUGH [None]
